FAERS Safety Report 10373212 (Version 1)
Quarter: 2014Q3

REPORT INFORMATION
  Report Type: Spontaneous
  Country: US (occurrence: US)
  Receive Date: 20140808
  Receipt Date: 20140808
  Transmission Date: 20150326
  Serious: No
  Sender: FDA-Public Use
  Company Number: US-BRISTOL-MYERS SQUIBB COMPANY-20205803

PATIENT
  Age: 58 Year
  Sex: Female
  Weight: 66.21 kg

DRUGS (9)
  1. CORTISONE CREAM [Concomitant]
     Dosage: 1%
  2. ASPIRIN. [Concomitant]
     Active Substance: ASPIRIN
     Dosage: TABLET
  3. SPRYCEL [Suspect]
     Active Substance: DASATINIB
     Route: 048
  4. OSTEO BI-FLEX [Concomitant]
     Active Substance: CHONDROITIN SULFATE A\GLUCOSAMINE
     Dosage: 1DF: 250-200 TABS, UNIT:NOS
  5. MULTIVITAMIN [Concomitant]
     Active Substance: VITAMINS
     Dosage: CAPSULE
  6. VITAMIN D [Concomitant]
     Active Substance: CHOLECALCIFEROL
     Dosage: 1DF: CAPSULE,100 UNIT
  7. MUCINEX [Concomitant]
     Active Substance: GUAIFENESIN
     Dosage: TAB SINUS
  8. FISH OIL [Concomitant]
     Active Substance: FISH OIL
     Dosage: CAPSULE
  9. WELCHOL [Concomitant]
     Active Substance: COLESEVELAM HYDROCHLORIDE
     Dosage: TABLET

REACTIONS (3)
  - Pruritus [Unknown]
  - Fluid retention [Unknown]
  - Platelet count decreased [Unknown]
